FAERS Safety Report 26196625 (Version 1)
Quarter: 2025Q4

REPORT INFORMATION
  Report Type: Spontaneous
  Country: BR (occurrence: BR)
  Receive Date: 20251224
  Receipt Date: 20251224
  Transmission Date: 20260119
  Serious: Yes (Other)
  Sender: CSL BEHRING
  Company Number: BR-CSL-11646

PATIENT
  Age: 7 Year
  Sex: Female

DRUGS (1)
  1. HIZENTRA [Suspect]
     Active Substance: HUMAN IMMUNOGLOBULIN G
     Dosage: UNK
     Route: 065
     Dates: start: 2024

REACTIONS (2)
  - Lipodystrophy acquired [Unknown]
  - Infusion site fibrosis [Unknown]

NARRATIVE: CASE EVENT DATE: 20251001
